FAERS Safety Report 9839266 (Version 1)
Quarter: 2014Q1

REPORT INFORMATION
  Report Type: Spontaneous
  Country: US (occurrence: None)
  Receive Date: 20140116
  Receipt Date: 20140116
  Transmission Date: 20141002
  Serious: Yes (Hospitalization)
  Sender: FDA-Public Use
  Company Number: B0959981A

PATIENT
  Sex: Male

DRUGS (10)
  1. QUETIAPINE (FORMULATION UNKNOWN) (GENERIC) (QUETIAPINE FUMARATE) [Suspect]
     Indication: SUICIDAL BEHAVIOUR
     Route: 064
  2. PAROXETINE HYDROCHLORIDE (FORMULATION UNKNOWN) (GENERIC) (PAROXETINE HYDROCHLORIDE) [Suspect]
     Indication: PRODUCT USED FOR UNKNOWN INDICATION
     Route: 064
  3. FLUOXETINE (FORMULATION UNKNOWN) (GENERIC) (FLUOXETINE) [Suspect]
     Indication: PRODUCT USED FOR UNKNOWN INDICATION
     Route: 064
  4. LAMOTRIGINE (FORMULATION UNKNOWN) (GENERIC) (LAMOTRIGINE) [Suspect]
     Indication: PRODUCT USED FOR UNKNOWN INDICATION
     Route: 064
  5. BETAMETHASONE (FORMULATION UNKNOWN) (GENERIC) (BETAMETHASONE) [Suspect]
     Indication: PRODUCT USED FOR UNKNOWN INDICATION
     Route: 064
  6. CLONAZEPAM (FORMULATION UNKNOWN) (CLONAZEPAM) [Suspect]
     Indication: PRODUCT USED FOR UNKNOWN INDICATION
     Route: 064
  7. LORAZEPAM (FORMULATION UNKNOWN) (LORAZEPAM) [Suspect]
     Indication: PRODUCT USED FOR UNKNOWN INDICATION
     Route: 064
  8. HALOPERIDOL (FORMULATION UNKNOWN) (HALOPERIDOL) [Suspect]
     Indication: PRODUCT USED FOR UNKNOWN INDICATION
     Route: 064
  9. GLIBENCLAMIDE (FORMULATION UNKNOWN) (GLYBURIDE) [Suspect]
     Indication: GESTATIONAL DIABETES
     Route: 064
  10. ANESTHETIC (FORMULATION UNKNOWN) (ANESTHETIC) [Suspect]
     Indication: CAESAREAN SECTION
     Route: 064

REACTIONS (4)
  - Foetal exposure during pregnancy [None]
  - Transverse presentation [None]
  - Caesarean section [None]
  - Premature baby [None]
